FAERS Safety Report 8199332-3 (Version None)
Quarter: 2012Q1

REPORT INFORMATION
  Report Type: 
  Country: None (occurrence: None)
  Receive Date: 20120309
  Receipt Date: 20120305
  Transmission Date: 20120608
  Serious: Yes (Other)
  Sender: FDA-Public Use
  Company Number: PHHY2012JP019023

PATIENT
  Age: 54 Year
  Sex: Female
  Weight: 52 kg

DRUGS (9)
  1. LEUCOVORIN CALCIUM [Suspect]
     Indication: COLON CANCER METASTATIC
     Dates: start: 20061101, end: 20080101
  2. LEUCOVORIN CALCIUM [Suspect]
     Dates: start: 20080201, end: 20090401
  3. BEVACIZUMAB [Concomitant]
     Indication: COLON CANCER METASTATIC
     Dates: start: 20080501, end: 20090401
  4. FLUOROURACIL [Suspect]
     Indication: COLON CANCER METASTATIC
     Dates: start: 20061101, end: 20080101
  5. FLUOROURACIL [Suspect]
     Dates: start: 20080201, end: 20090401
  6. FLUOROURACIL [Suspect]
     Dates: start: 20100101
  7. OXALIPLATIN [Suspect]
     Indication: COLON CANCER METASTATIC
     Dates: start: 20061101, end: 20080101
  8. LANSOPRAZOLE [Concomitant]
     Indication: GASTRITIS
  9. LEUCOVORIN CALCIUM [Suspect]
     Dates: start: 20100101

REACTIONS (2)
  - NEUTROPENIA [None]
  - DRUG INEFFECTIVE [None]
